FAERS Safety Report 7287771-4 (Version None)
Quarter: 2011Q1

REPORT INFORMATION
  Report Type: 
  Country: None (occurrence: None)
  Receive Date: 20110211
  Receipt Date: 20110131
  Transmission Date: 20110831
  Serious: Yes (Death, Other)
  Sender: FDA-Public Use
  Company Number: FR-CELGENEUS-056-21880-10102513

PATIENT
  Sex: Male

DRUGS (2)
  1. REVLIMID [Suspect]
     Indication: MULTIPLE MYELOMA
     Route: 048
     Dates: start: 20070616
  2. REVLIMID [Suspect]
     Route: 048
     Dates: start: 20100520, end: 20100622

REACTIONS (2)
  - MYELODYSPLASTIC SYNDROME [None]
  - ANAEMIA [None]
